FAERS Safety Report 18707808 (Version 1)
Quarter: 2021Q1

REPORT INFORMATION
  Report Type: Spontaneous
  Country: US (occurrence: US)
  Receive Date: 20210106
  Receipt Date: 20210106
  Transmission Date: 20210419
  Serious: Yes (Hospitalization)
  Sender: FDA-Public Use
  Company Number: US-PFIZER INC-2020420055

PATIENT
  Age: 75 Year
  Sex: Male

DRUGS (1)
  1. REVATIO [Suspect]
     Active Substance: SILDENAFIL CITRATE
     Indication: PULMONARY HYPERTENSION
     Dosage: 20 MG 6 TIMES A DAY, (90 COUNT)
     Route: 048

REACTIONS (4)
  - Intentional overdose [Unknown]
  - Pelvic fracture [Unknown]
  - Fall [Unknown]
  - Weight increased [Unknown]
